FAERS Safety Report 8451068-7 (Version None)
Quarter: 2012Q2

REPORT INFORMATION
  Report Type: 
  Country: None (occurrence: None)
  Receive Date: 20120620
  Receipt Date: 20120611
  Transmission Date: 20120825
  Serious: Yes (Life-Threatening, Hospitalization)
  Sender: FDA-Public Use
  Company Number: US-VERTEX PHARMACEUTICALS INC.-AE-2012-003178

PATIENT
  Sex: Female
  Weight: 76.272 kg

DRUGS (8)
  1. PEGASYS [Concomitant]
     Indication: HEPATITIS C
     Route: 058
     Dates: start: 20110728, end: 20110811
  2. FELODIPINE [Concomitant]
     Indication: BLOOD PRESSURE
  3. CELEXA [Concomitant]
     Indication: ANTIDEPRESSANT THERAPY
  4. RIBAVIRIN [Concomitant]
     Indication: HEPATITIS C
     Route: 048
     Dates: start: 20110728, end: 20110815
  5. NEXIUM [Concomitant]
  6. DIOVAN [Concomitant]
     Indication: BLOOD PRESSURE
  7. PROZAC [Concomitant]
     Indication: DEPRESSION
  8. INCIVEK [Suspect]
     Indication: HEPATITIS C
     Route: 048
     Dates: start: 20110728, end: 20110815

REACTIONS (9)
  - BRONCHITIS [None]
  - MALAISE [None]
  - BLOOD URIC ACID INCREASED [None]
  - ANAEMIA [None]
  - DYSPNOEA [None]
  - FATIGUE [None]
  - CHEST PAIN [None]
  - PNEUMONIA PRIMARY ATYPICAL [None]
  - OXYGEN SATURATION DECREASED [None]
